FAERS Safety Report 19980124 (Version 1)
Quarter: 2021Q4

REPORT INFORMATION
  Report Type: Spontaneous
  Country: US (occurrence: US)
  Receive Date: 20211021
  Receipt Date: 20211021
  Transmission Date: 20220303
  Serious: No
  Sender: FDA-Public Use
  Company Number: US-SA-SAC20211019000525

PATIENT
  Age: 46 Year
  Sex: Male

DRUGS (1)
  1. DUPIXENT [Suspect]
     Active Substance: DUPILUMAB
     Indication: Dermatitis atopic
     Dosage: 300 MG, QOW
     Route: 058

REACTIONS (6)
  - Pyrexia [Unknown]
  - Diarrhoea [Unknown]
  - Cough [Unknown]
  - Headache [Unknown]
  - Malaise [Unknown]
  - COVID-19 [Unknown]

NARRATIVE: CASE EVENT DATE: 20211010
